FAERS Safety Report 10056203 (Version 3)
Quarter: 2014Q2

REPORT INFORMATION
  Report Type: Spontaneous
  Country: IT (occurrence: IT)
  Receive Date: 20140403
  Receipt Date: 20140617
  Transmission Date: 20141212
  Serious: Yes (Death)
  Sender: FDA-Public Use
  Company Number: IT-MPIJNJ-2014JNJ001047

PATIENT
  Sex: 0

DRUGS (5)
  1. VELCADE [Suspect]
     Indication: PLASMA CELL MYELOMA RECURRENT
     Dosage: 1.3 MG/M2, UNK
     Route: 065
     Dates: end: 20110530
  2. BENDAMUSTINE [Suspect]
     Indication: PLASMA CELL MYELOMA RECURRENT
     Dosage: 70 MG/M2, UNK
     Route: 065
  3. DEXAMETHASONE [Suspect]
     Indication: PLASMA CELL MYELOMA RECURRENT
     Dosage: 160 MG, UNK
     Route: 065
  4. ACYCLOVIR                          /00587301/ [Concomitant]
     Indication: PROPHYLAXIS
  5. TRIMETHOPRIM SULFAMETHOXAZOLE [Concomitant]
     Indication: PROPHYLAXIS

REACTIONS (1)
  - Sudden death [Fatal]
